FAERS Safety Report 21126397 (Version 12)
Quarter: 2024Q3

REPORT INFORMATION
  Report Type: Report from Study
  Country: AR (occurrence: AR)
  Receive Date: 20220725
  Receipt Date: 20240711
  Transmission Date: 20241016
  Serious: Yes (Other)
  Sender: NOVARTIS
  Company Number: AR-NOVARTISPH-NVSC2022AR149304

PATIENT
  Age: 57 Year
  Sex: Female

DRUGS (1)
  1. MAYZENT [Suspect]
     Active Substance: SIPONIMOD
     Indication: Multiple sclerosis
     Dosage: 2 MG, QD
     Route: 048
     Dates: start: 20220504

REACTIONS (18)
  - Multiple sclerosis relapse [Unknown]
  - Arrhythmia [Unknown]
  - Concomitant disease aggravated [Unknown]
  - Somnolence [Unknown]
  - Anxiety [Unknown]
  - Mood swings [Unknown]
  - Heat illness [Unknown]
  - Tonsillitis [Unknown]
  - Tonsillolith [Unknown]
  - Hypoaesthesia [Unknown]
  - Musculoskeletal stiffness [Unknown]
  - Movement disorder [Unknown]
  - Headache [Recovering/Resolving]
  - Fatigue [Unknown]
  - Gait inability [Unknown]
  - Product distribution issue [Unknown]
  - Drug titration error [Unknown]
  - Mobility decreased [Unknown]

NARRATIVE: CASE EVENT DATE: 20220501
